FAERS Safety Report 7393578-X (Version None)
Quarter: 2011Q2

REPORT INFORMATION
  Report Type: 
  Country: None (occurrence: None)
  Receive Date: 20110405
  Receipt Date: 20110401
  Transmission Date: 20111010
  Serious: No
  Sender: FDA-Public Use
  Company Number: US-PFIZER INC-2007064864

PATIENT
  Sex: Female
  Weight: 74.545 kg

DRUGS (7)
  1. ACIPHEX [Concomitant]
     Indication: GASTROOESOPHAGEAL REFLUX DISEASE
  2. NICORETTE [Concomitant]
     Dosage: UNK
  3. NICORETTE [Concomitant]
     Dosage: UNK
     Dates: start: 20110325
  4. CHANTIX [Suspect]
     Dosage: 1 MG, UNK
     Dates: start: 20070701
  5. ACIPHEX [Concomitant]
     Indication: ABDOMINAL PAIN UPPER
  6. CHANTIX [Suspect]
     Indication: SMOKING CESSATION THERAPY
     Dosage: UNK
     Dates: start: 20070401, end: 20070101
  7. LUMIGAN [Concomitant]
     Indication: GLAUCOMA

REACTIONS (4)
  - DRUG INTOLERANCE [None]
  - ABDOMINAL PAIN UPPER [None]
  - DRUG INEFFECTIVE [None]
  - FATIGUE [None]
